FAERS Safety Report 21199656 (Version 1)
Quarter: 2022Q3

REPORT INFORMATION
  Report Type: Other
  Country: None (occurrence: TN)
  Receive Date: 20220811
  Receipt Date: 20220811
  Transmission Date: 20221027
  Serious: Yes (Hospitalization, Other)
  Sender: FDA-Public Use
  Company Number: TN-Ajanta Pharma USA Inc.-2131714

PATIENT
  Age: 39 Year
  Sex: Male

DRUGS (2)
  1. DOXYCYCLINE HYCLATE [Suspect]
     Active Substance: DOXYCYCLINE HYCLATE
     Indication: Plasmodium falciparum infection
  2. QUININE SULFATE [Suspect]
     Active Substance: QUININE SULFATE
     Route: 048

REACTIONS (3)
  - Cinchonism [Recovering/Resolving]
  - Inhibitory drug interaction [Recovered/Resolved]
  - Hallucinations, mixed [Unknown]
